FAERS Safety Report 10547170 (Version 3)
Quarter: 2014Q4

REPORT INFORMATION
  Report Type: Not Available
  Country: US (occurrence: US)
  Receive Date: 20141027
  Receipt Date: 20141105
  Transmission Date: 20150529
  Serious: Yes (Death, Hospitalization)
  Sender: FDA-Public Use
  Company Number: US-ONYX-2014-1647

PATIENT
  Age: 73 Year
  Sex: Male

DRUGS (1)
  1. KYPROLIS [Suspect]
     Active Substance: CARFILZOMIB
     Indication: PLASMA CELL MYELOMA
     Route: 042
     Dates: start: 201311

REACTIONS (14)
  - Back pain [Unknown]
  - Diarrhoea [Unknown]
  - Musculoskeletal chest pain [Recovering/Resolving]
  - Pain [Unknown]
  - Death [Fatal]
  - Chest pain [Recovered/Resolved]
  - Vomiting [Unknown]
  - Disorientation [Unknown]
  - General physical health deterioration [Unknown]
  - Abdominal pain upper [Unknown]
  - Hypertension [Unknown]
  - Oedema peripheral [Unknown]
  - Somnolence [Unknown]
  - Multiple fractures [Unknown]

NARRATIVE: CASE EVENT DATE: 2014
